FAERS Safety Report 6863690-X (Version None)
Quarter: 2010Q3

REPORT INFORMATION
  Report Type: 
  Country: None (occurrence: None)
  Receive Date: 20100721
  Receipt Date: 20080306
  Transmission Date: 20110219
  Serious: No
  Sender: FDA-Public Use
  Company Number: US-PFIZER INC-2008022578

PATIENT
  Sex: Female
  Weight: 131.5 kg

DRUGS (6)
  1. CHANTIX [Suspect]
     Indication: SMOKING CESSATION THERAPY
     Route: 048
     Dates: start: 20080201
  2. ALBUTEROL [Concomitant]
     Indication: ASTHMA
  3. VITAMIN C [Concomitant]
  4. MULTI-VITAMINS [Concomitant]
  5. PERCOCET [Concomitant]
     Indication: BACK PAIN
  6. PERCOCET [Concomitant]
     Indication: MUSCULOSKELETAL CHEST PAIN

REACTIONS (5)
  - ABDOMINAL DISTENSION [None]
  - LOCAL SWELLING [None]
  - MUSCLE SPASMS [None]
  - OEDEMA PERIPHERAL [None]
  - SWELLING [None]
